FAERS Safety Report 4336855-9 (Version None)
Quarter: 2004Q1

REPORT INFORMATION
  Report Type: 
  Country: None (occurrence: None)
  Receive Date: 20040329
  Receipt Date: 20040112
  Transmission Date: 20041129
  Serious: No
  Sender: FDA-Public Use
  Company Number: USA040156327

PATIENT
  Age: 34 Year

DRUGS (1)
  1. STRATTERA [Suspect]
     Dosage: 180 MG/IN THE MORNING

REACTIONS (1)
  - PRESCRIBED OVERDOSE [None]
